FAERS Safety Report 14143858 (Version 3)
Quarter: 2018Q1

REPORT INFORMATION
  Report Type: Report from Study
  Country: GB (occurrence: GB)
  Receive Date: 20171031
  Receipt Date: 20180326
  Transmission Date: 20180508
  Serious: Yes (Other)
  Sender: FDA-Public Use
  Company Number: GB-ROCHE-1999375

PATIENT
  Sex: Female

DRUGS (1)
  1. ROACTEMRA [Suspect]
     Active Substance: TOCILIZUMAB
     Indication: RHEUMATOID ARTHRITIS
     Route: 058
     Dates: start: 20170309, end: 20170817

REACTIONS (4)
  - Neoplasm [Unknown]
  - Loose tooth [Unknown]
  - Tooth discolouration [Unknown]
  - Synovial cyst [Unknown]
